FAERS Safety Report 7820508-6 (Version None)
Quarter: 2011Q4

REPORT INFORMATION
  Report Type: 
  Country: None (occurrence: None)
  Receive Date: 20111018
  Receipt Date: 20111004
  Transmission Date: 20120403
  Serious: Yes (Hospitalization, Other)
  Sender: FDA-Public Use
  Company Number: US-BAYER-2010-006267

PATIENT
  Age: 45 Year
  Sex: Female
  Weight: 82 kg

DRUGS (4)
  1. YASMIN [Suspect]
     Indication: PREMENSTRUAL SYNDROME
     Dosage: UNK
     Dates: start: 19980101, end: 20080101
  2. IBUPROFEN (ADVIL) [Concomitant]
  3. YAZ [Suspect]
     Indication: PREMENSTRUAL SYNDROME
     Dosage: UNK
     Dates: start: 19980101, end: 20080101
  4. MOTRIN [Concomitant]

REACTIONS (10)
  - CYSTITIS [None]
  - PAIN [None]
  - FEAR [None]
  - ANXIETY [None]
  - CHOLELITHIASIS [None]
  - EMOTIONAL DISTRESS [None]
  - CHOLECYSTITIS CHRONIC [None]
  - HEPATIC CYST [None]
  - GASTROINTESTINAL PAIN [None]
  - ABDOMINAL PAIN [None]
